FAERS Safety Report 25176063 (Version 1)
Quarter: 2025Q2

REPORT INFORMATION
  Report Type: Spontaneous
  Country: US (occurrence: US)
  Receive Date: 20250409
  Receipt Date: 20250409
  Transmission Date: 20250717
  Serious: No
  Sender: ENDO
  Company Number: US-ENDO USA, INC.-2024-003533

PATIENT
  Sex: Female

DRUGS (1)
  1. HYDROXYUREA [Suspect]
     Active Substance: HYDROXYUREA
     Indication: Product used for unknown indication
     Route: 065
     Dates: start: 202304

REACTIONS (4)
  - Abdominal pain upper [Unknown]
  - Feeling abnormal [Unknown]
  - Headache [Unknown]
  - Wrong technique in product usage process [Unknown]

NARRATIVE: CASE EVENT DATE: 20240101
